FAERS Safety Report 23414276 (Version 1)
Quarter: 2024Q1

REPORT INFORMATION
  Report Type: Spontaneous
  Country: AU (occurrence: AU)
  Receive Date: 20240118
  Receipt Date: 20240118
  Transmission Date: 20240410
  Serious: Yes (Death, Hospitalization, Other)
  Sender: FDA-Public Use
  Company Number: AU-BoehringerIngelheim-2024-BI-002454

PATIENT
  Age: 71 Year
  Sex: Male

DRUGS (11)
  1. JARDIANCE [Suspect]
     Active Substance: EMPAGLIFLOZIN
     Indication: Type 2 diabetes mellitus
     Dosage: DAILY DOSE: 10 MILLIGRAM(S)
     Route: 048
  2. CANDESAN COMBI [Concomitant]
     Indication: Hypertension
     Dosage: FORM STREGTH 16MG/12.5MG
     Route: 048
  3. Coloxyl With Senna (docusate sodium,sennosides) [Concomitant]
     Indication: Constipation
     Route: 048
  4. Nesina Met (alogliptin benzoate,metformin hydrochloride) [Concomitant]
     Indication: Diabetes mellitus
     Dosage: FORM STRENGTH 12.5/1000MG
     Route: 048
  5. Systane Eye Drops (naphazoline hydrochloride) [Concomitant]
     Indication: Dry eye
     Dosage: EYE DROPS
     Route: 047
  6. BISOPROLOL FUMARATE [Concomitant]
     Active Substance: BISOPROLOL FUMARATE
     Indication: Cardiac failure chronic
     Route: 048
  7. DIGOXIN [Concomitant]
     Active Substance: DIGOXIN
     Indication: Heart rate abnormal
     Route: 048
  8. LERCANIDIPINE HYDROCHLORIDE [Concomitant]
     Active Substance: LERCANIDIPINE HYDROCHLORIDE
     Indication: Hypertension
     Route: 048
  9. ACETAMINOPHEN [Concomitant]
     Active Substance: ACETAMINOPHEN
     Indication: Pain
     Route: 048
  10. RIVAROXABAN [Concomitant]
     Active Substance: RIVAROXABAN
     Indication: Arrhythmia prophylaxis
     Route: 048
  11. VENTOLIN [Concomitant]
     Active Substance: ALBUTEROL SULFATE
     Indication: Dyspnoea
     Route: 055

REACTIONS (7)
  - Concomitant disease aggravated [Fatal]
  - Dyspnoea [Unknown]
  - Chest pain [Unknown]
  - Cough [Unknown]
  - Lethargy [Unknown]
  - Fournier^s gangrene [Not Recovered/Not Resolved]
  - Delirium [Recovered/Resolved]

NARRATIVE: CASE EVENT DATE: 20230613
